FAERS Safety Report 15632208 (Version 1)
Quarter: 2018Q4

REPORT INFORMATION
  Report Type: Spontaneous
  Country: US (occurrence: US)
  Receive Date: 20181119
  Receipt Date: 20181119
  Transmission Date: 20190205
  Serious: Yes (Other)
  Sender: FDA-Public Use
  Company Number: US-BAYER-2018-214019

PATIENT
  Age: 38 Year
  Sex: Female

DRUGS (1)
  1. MIRENA [Suspect]
     Active Substance: LEVONORGESTREL
     Indication: MENORRHAGIA
     Dosage: 20 MCG/24HR, CONT
     Route: 015
     Dates: start: 201511

REACTIONS (8)
  - Abdominal distension [None]
  - Vulvovaginal dryness [None]
  - Breast tenderness [None]
  - Dyspareunia [None]
  - Vulvovaginal discomfort [None]
  - Genital haemorrhage [None]
  - Abdominal pain [None]
  - Amenorrhoea [None]
